FAERS Safety Report 10070474 (Version 2)
Quarter: 2014Q2

REPORT INFORMATION
  Report Type: Spontaneous
  Country: US (occurrence: GB)
  Receive Date: 20140410
  Receipt Date: 20140502
  Transmission Date: 20141212
  Serious: Yes (Life-Threatening, Hospitalization)
  Sender: FDA-Public Use
  Company Number: 2014SP001924

PATIENT
  Age: 70 Year
  Sex: Male
  Weight: 74 kg

DRUGS (9)
  1. VANCOMYCIN [Suspect]
     Indication: ANTIBIOTIC PROPHYLAXIS
     Route: 042
     Dates: start: 20140228, end: 20140228
  2. BERIPLEX P/N /01450501/ [Suspect]
     Indication: HAEMORRHAGE PROPHYLAXIS
     Route: 042
     Dates: start: 20140228, end: 20140228
  3. CALCIUM CARBONATE [Concomitant]
  4. COLECALCIFEROL [Concomitant]
  5. BISOPROLOL [Concomitant]
     Route: 048
  6. CHLORHEXIDINE [Concomitant]
     Route: 061
  7. DIGOXIN [Concomitant]
     Route: 048
  8. WARFARIN [Concomitant]
     Indication: ATRIAL FIBRILLATION
  9. EMOLLIENTS AND PROTECTIVES [Concomitant]

REACTIONS (7)
  - Respiratory distress [Recovered/Resolved]
  - Dyspnoea [Not Recovered/Not Resolved]
  - Erythema [Recovered/Resolved]
  - Urticaria [Unknown]
  - Adverse reaction [Unknown]
  - Pruritus [Not Recovered/Not Resolved]
  - Blood pressure increased [Not Recovered/Not Resolved]
